FAERS Safety Report 6879193-2 (Version None)
Quarter: 2010Q3

REPORT INFORMATION
  Report Type: 
  Country: None (occurrence: None)
  Receive Date: 20100728
  Receipt Date: 20100526
  Transmission Date: 20110219
  Serious: No
  Sender: FDA-Public Use
  Company Number: US-TYCO HEALTHCARE/MALLINCKRODT-T201001337

PATIENT

DRUGS (1)
  1. OXYCODONE HCL EXTENDED-RELEASE [Suspect]
     Dosage: UNK
     Dates: start: 20100523

REACTIONS (2)
  - DRUG EFFECT DECREASED [None]
  - DRUG EFFECT DELAYED [None]
